FAERS Safety Report 24624955 (Version 1)
Quarter: 2024Q4

REPORT INFORMATION
  Report Type: Spontaneous
  Country: MX (occurrence: MX)
  Receive Date: 20241115
  Receipt Date: 20241115
  Transmission Date: 20250114
  Serious: Yes (Death)
  Sender: AMGEN
  Company Number: MX-AMGEN-MEXSP2024224595

PATIENT
  Age: 81 Year
  Sex: Male

DRUGS (2)
  1. LUMAKRAS [Suspect]
     Active Substance: SOTORASIB
     Indication: Lung adenocarcinoma stage III
     Dosage: UNK
     Route: 065
     Dates: start: 20230224
  2. LUMAKRAS [Suspect]
     Active Substance: SOTORASIB
     Indication: K-ras gene mutation

REACTIONS (2)
  - Myocardial ischaemia [Fatal]
  - Diarrhoea [Recovered/Resolved]
